FAERS Safety Report 4964888-8 (Version None)
Quarter: 2006Q2

REPORT INFORMATION
  Report Type: 
  Country: None (occurrence: None)
  Receive Date: 20060403
  Receipt Date: 20060320
  Transmission Date: 20061013
  Serious: Yes (Hospitalization)
  Sender: FDA-Public Use
  Company Number: RENA-11706

PATIENT
  Age: 24 Year
  Sex: Male

DRUGS (7)
  1. RENAGEL [Suspect]
     Indication: HYPERPHOSPHATAEMIA
     Dates: end: 20060317
  2. RENAGEL [Suspect]
     Indication: HYPERPHOSPHATAEMIA
  3. ZESTRIL [Concomitant]
  4. ROCALTROL [Concomitant]
  5. CALCIUM ACETATE [Concomitant]
  6. EPOGEN [Concomitant]
  7. DILATREND [Concomitant]

REACTIONS (1)
  - DYSPNOEA [None]
